FAERS Safety Report 25682726 (Version 2)
Quarter: 2025Q3

REPORT INFORMATION
  Report Type: Spontaneous
  Country: EU (occurrence: EU)
  Receive Date: 20250814
  Receipt Date: 20250819
  Transmission Date: 20251020
  Serious: Yes (Hospitalization)
  Sender: PFIZER
  Company Number: None

PATIENT
  Age: 43 Year
  Sex: Female

DRUGS (3)
  1. CARBOPLATIN [Suspect]
     Active Substance: CARBOPLATIN
     Indication: Breast cancer female
     Dosage: UNK, EVERY 3 WEEKS (1.5 AUC)
     Route: 042
     Dates: start: 20250707, end: 20250707
  2. PACLITAXEL [Suspect]
     Active Substance: PACLITAXEL
     Indication: Breast cancer female
     Dosage: 80 MG/M2, EVERY 3 WEEKS (EVERY 21 DAYS)
     Route: 042
     Dates: start: 20250707, end: 20250707
  3. KEYTRUDA [Suspect]
     Active Substance: PEMBROLIZUMAB
     Indication: Breast cancer female
     Dosage: 2 MG/KG, EVERY 3 WEEKS (EVERY 21 DAYS)
     Route: 042
     Dates: start: 20250707, end: 20250707

REACTIONS (2)
  - Rash morbilliform [Recovered/Resolved]
  - Troponin increased [Recovered/Resolved]

NARRATIVE: CASE EVENT DATE: 20250715
